FAERS Safety Report 5449211-7 (Version None)
Quarter: 2007Q3

REPORT INFORMATION
  Report Type: 
  Country: None (occurrence: None)
  Receive Date: 20070911
  Receipt Date: 20070829
  Transmission Date: 20080115
  Serious: No
  Sender: FDA-Public Use
  Company Number: US-BOEHRINGER INGELHEIM PHARMACEUTICALS, INC.-2007-BP-20084BP

PATIENT
  Age: 59 Year
  Sex: Female

DRUGS (2)
  1. MIRAPEX [Suspect]
     Indication: PARKINSONISM
     Route: 048
     Dates: start: 19950101
  2. SEROQUEL [Concomitant]

REACTIONS (1)
  - ARTHRALGIA [None]
